FAERS Safety Report 18302417 (Version 3)
Quarter: 2020Q4

REPORT INFORMATION
  Report Type: Spontaneous
  Country: FR (occurrence: FR)
  Receive Date: 20200923
  Receipt Date: 20201208
  Transmission Date: 20210113
  Serious: Yes (Hospitalization)
  Sender: FDA-Public Use
  Company Number: FR-JNJFOC-20200924658

PATIENT
  Age: 79 Year
  Sex: Female
  Weight: 72 kg

DRUGS (13)
  1. AMPHOTERICINE B [Suspect]
     Active Substance: AMPHOTERICIN B
     Indication: ORAL CANDIDIASIS
     Route: 048
     Dates: start: 20200728, end: 20200814
  2. ACENOCOUMAROL [Suspect]
     Active Substance: ACENOCOUMAROL
     Indication: ATRIAL FIBRILLATION
     Route: 048
     Dates: start: 20200630, end: 20200814
  3. CARVEDILOL. [Suspect]
     Active Substance: CARVEDILOL
     Indication: PRODUCT USED FOR UNKNOWN INDICATION
     Route: 065
     Dates: start: 20200703
  4. KARDEGIC [Suspect]
     Active Substance: ASPIRIN DL-LYSINE
     Indication: ATRIAL FIBRILLATION
     Route: 048
     Dates: start: 20200722, end: 20200814
  5. CIPROFLOXACINE                     /00697201/ [Suspect]
     Active Substance: CIPROFLOXACIN
     Indication: SPONDYLITIS
     Route: 048
     Dates: start: 20200710, end: 20200814
  6. DUROGESIC [Suspect]
     Active Substance: FENTANYL
     Indication: PAIN
     Route: 062
     Dates: start: 20200710, end: 20200814
  7. INSULIN GLARGINE [Concomitant]
     Active Substance: INSULIN GLARGINE
     Dates: start: 20200701
  8. ORAMORPH [Suspect]
     Active Substance: MORPHINE SULFATE
     Route: 048
     Dates: end: 20200802
  9. ORAMORPH [Suspect]
     Active Substance: MORPHINE SULFATE
     Indication: PAIN
     Route: 048
     Dates: start: 20200704, end: 20200814
  10. CEFTRIAXONE. [Suspect]
     Active Substance: CEFTRIAXONE
     Indication: SPONDYLITIS
     Route: 042
     Dates: start: 20200715, end: 20200814
  11. FUROSEMIDE. [Concomitant]
     Active Substance: FUROSEMIDE
     Dates: start: 20200701
  12. HYDROXYZINE [Suspect]
     Active Substance: HYDROXYZINE HYDROCHLORIDE
     Indication: PRODUCT USED FOR UNKNOWN INDICATION
     Route: 065
     Dates: start: 20200721, end: 20200814
  13. COUMADINE [Suspect]
     Active Substance: WARFARIN SODIUM
     Indication: ATRIAL FIBRILLATION
     Route: 048
     Dates: start: 20200630, end: 20200814

REACTIONS (10)
  - Hypercreatininaemia [Recovered/Resolved]
  - Hepatocellular injury [Recovering/Resolving]
  - Splenomegaly [Unknown]
  - Intra-abdominal fluid collection [Unknown]
  - Glossitis [Unknown]
  - Cheilitis [Unknown]
  - Breath sounds [Unknown]
  - Rash maculo-papular [Not Recovered/Not Resolved]
  - Eosinophilia [Recovered/Resolved]
  - Oedema peripheral [Recovered/Resolved]

NARRATIVE: CASE EVENT DATE: 202008
